FAERS Safety Report 19036450 (Version 1)
Quarter: 2021Q1

REPORT INFORMATION
  Report Type: Spontaneous
  Country: US (occurrence: US)
  Receive Date: 20210320
  Receipt Date: 20210320
  Transmission Date: 20210420
  Serious: Yes (Other)
  Sender: FDA-Public Use
  Company Number: None

PATIENT
  Age: 33 Year
  Sex: Female
  Weight: 69.75 kg

DRUGS (8)
  1. GIANVI [Concomitant]
     Active Substance: DROSPIRENONE\ETHINYL ESTRADIOL
  2. VITAMIN D3 [Concomitant]
     Active Substance: CHOLECALCIFEROL
  3. CALCIUM/MAGNESIUM/ZINC [Concomitant]
  4. NIKKI [Suspect]
     Active Substance: DROSPIRENONE\ETHINYL ESTRADIOL
     Indication: MENORRHAGIA
     Dosage: ?          QUANTITY:1 TABLET(S);?
     Route: 048
     Dates: start: 20210307, end: 20210316
  5. IRON [Concomitant]
     Active Substance: IRON
  6. SUPER B COMPLEX WITH VITAMIN C [Concomitant]
  7. MULTIVITAMINS [Concomitant]
     Active Substance: VITAMINS
  8. PROBIOTIC [Concomitant]
     Active Substance: PROBIOTICS NOS

REACTIONS (11)
  - Dyspnoea [None]
  - Abdominal distension [None]
  - Fatigue [None]
  - Hypoaesthesia [None]
  - Back pain [None]
  - Asthenia [None]
  - Vaginal haemorrhage [None]
  - Abdominal pain upper [None]
  - Visual impairment [None]
  - Pain in extremity [None]
  - Faeces pale [None]

NARRATIVE: CASE EVENT DATE: 20210317
